FAERS Safety Report 6854215-3 (Version None)
Quarter: 2010Q3

REPORT INFORMATION
  Report Type: 
  Country: None (occurrence: None)
  Receive Date: 20100717
  Receipt Date: 20071217
  Transmission Date: 20110219
  Serious: No
  Sender: FDA-Public Use
  Company Number: US-PFIZER INC-2008000802

PATIENT
  Sex: Male
  Weight: 129.3 kg

DRUGS (12)
  1. CHANTIX [Suspect]
     Indication: SMOKING CESSATION THERAPY
     Dates: start: 20071101, end: 20071201
  2. GLYBURIDE [Concomitant]
     Indication: DIABETES MELLITUS
  3. METFORMIN HCL [Concomitant]
  4. ALL OTHER THERAPEUTIC PRODUCTS [Concomitant]
  5. HYDROCODONE [Concomitant]
  6. HYOSCYAMINE SULFATE [Concomitant]
  7. IBUPROFEN [Concomitant]
  8. LISINOPRIL [Concomitant]
     Indication: BLOOD PRESSURE ABNORMAL
  9. LORAZEPAM [Concomitant]
  10. OMEPRAZOLE [Concomitant]
  11. SERTRALINE HCL [Concomitant]
  12. FLUNISOLIDE [Concomitant]

REACTIONS (1)
  - NIGHTMARE [None]
